FAERS Safety Report 5026775-9 (Version None)
Quarter: 2006Q2

REPORT INFORMATION
  Report Type: 
  Country: None (occurrence: None)
  Receive Date: 20060501
  Receipt Date: 20060202
  Transmission Date: 20061013
  Serious: No
  Sender: FDA-Public Use
  Company Number: 200610697BWH

PATIENT
  Age: 62 Year
  Sex: Male
  Weight: 78.9259 kg

DRUGS (6)
  1. NEXAVAR [Suspect]
     Indication: RENAL CELL CARCINOMA STAGE UNSPECIFIED
     Dosage: 200 MG, BID, ORAL
     Route: 048
     Dates: start: 20060128
  2. INDAPAMIDE [Concomitant]
  3. PROTONIX [Concomitant]
  4. REGLAN [Concomitant]
  5. TEMAZEPAM [Concomitant]
  6. MEGACE [Concomitant]

REACTIONS (1)
  - STOMATITIS [None]
